FAERS Safety Report 23260881 (Version 1)
Quarter: 2023Q4

REPORT INFORMATION
  Report Type: Spontaneous
  Country: US (occurrence: US)
  Receive Date: 20231205
  Receipt Date: 20231205
  Transmission Date: 20240109
  Serious: No
  Sender: FDA-Public Use
  Company Number: US-CELLTRION INC.-2023US009543

PATIENT

DRUGS (9)
  1. TRUXIMA [Suspect]
     Active Substance: RITUXIMAB-ABBS
     Indication: Rheumatoid arthritis
     Dosage: 1000MG DAY 1 AND 15 EVERY 6 MONTHS
     Dates: start: 20210701
  2. TRUXIMA [Suspect]
     Active Substance: RITUXIMAB-ABBS
     Dosage: 1000MG DAY 1 AND 15 EVERY 6 MONTHS
     Dates: start: 20210715
  3. TRUXIMA [Suspect]
     Active Substance: RITUXIMAB-ABBS
     Dosage: 1000MG DAY 1 AND 15 EVERY 6 MONTHS
     Dates: start: 20220104
  4. TRUXIMA [Suspect]
     Active Substance: RITUXIMAB-ABBS
     Dosage: 1000MG DAY 1 AND 15 EVERY 6 MONTHS
     Dates: start: 20220118
  5. TRUXIMA [Suspect]
     Active Substance: RITUXIMAB-ABBS
     Dosage: 1000MG DAY 1 AND 15 EVERY 6 MONTHS
     Dates: start: 20230303
  6. TRUXIMA [Suspect]
     Active Substance: RITUXIMAB-ABBS
     Dosage: 1000MG DAY 1 AND 15 EVERY 6 MONTHS
     Dates: start: 20230317
  7. PREDNISONE [Concomitant]
     Active Substance: PREDNISONE
  8. METHOTREXATE [Concomitant]
     Active Substance: METHOTREXATE
  9. HYDROCODONE [Concomitant]
     Active Substance: HYDROCODONE

REACTIONS (3)
  - Drug tolerance [Unknown]
  - Loss of therapeutic response [Recovering/Resolving]
  - Therapeutic response increased [Unknown]
